FAERS Safety Report 9782716 (Version 1)
Quarter: 2013Q4

REPORT INFORMATION
  Report Type: Spontaneous
  Country: US (occurrence: None)
  Receive Date: 20131224
  Receipt Date: 20131224
  Transmission Date: 20140711
  Serious: Yes (Other)
  Sender: FDA-Public Use
  Company Number: None

PATIENT
  Age: 58 Year
  Sex: Female

DRUGS (2)
  1. MORPHINE [Suspect]
     Indication: SEDATION
  2. VERSED [Suspect]

REACTIONS (2)
  - Infusion site urticaria [None]
  - Infusion site pruritus [None]
